FAERS Safety Report 7308044-7 (Version None)
Quarter: 2011Q1

REPORT INFORMATION
  Report Type: 
  Country: None (occurrence: None)
  Receive Date: 20110223
  Receipt Date: 20100930
  Transmission Date: 20110831
  Serious: Yes (Hospitalization)
  Sender: FDA-Public Use
  Company Number: US-BAYER-201010699NA

PATIENT
  Sex: Female
  Weight: 77 kg

DRUGS (31)
  1. CELEBREX [Concomitant]
  2. UNCODEABLE ^UNKNOWN MANUFACTURER^ [Concomitant]
  3. YAZ [Suspect]
     Indication: PREMENSTRUAL SYNDROME
     Route: 048
     Dates: start: 20060701, end: 20091101
  4. ADVAIR HFA [Concomitant]
  5. AZITHROMYCIN [Concomitant]
  6. LIDOCAINE HCL VISCOUS [Concomitant]
  7. PREDNISONE [Concomitant]
  8. UNCODEABLE ^UNCLASSIFIABLE^ [Concomitant]
  9. AMOXICILLIN [Concomitant]
  10. PROAIR HFA [Concomitant]
  11. YAZ [Suspect]
     Indication: MENSTRUATION IRREGULAR
  12. YAZ [Suspect]
     Indication: ORAL CONTRACEPTION
  13. VICODIN [Concomitant]
  14. DIURETICS [Concomitant]
  15. UNCODEABLE ^UNKNOWN MANUFACTURER^ [Concomitant]
  16. HYDROCODONE [Concomitant]
  17. FAMOTIDINE [Concomitant]
  18. ONDANSETRON [Concomitant]
  19. UNCODEABLE ^UNKNOWN MANUFACTURER^ [Concomitant]
  20. TYLENOL W/ CODEINE [Concomitant]
  21. ALBUTEROL [Concomitant]
  22. CEPHALEXIN PANTOPRAZOLE [Concomitant]
  23. KETOROLAC [Concomitant]
  24. IBUPROFEN [Concomitant]
  25. UNCODEABLE ^UNCLASSIFIABLE^ [Concomitant]
  26. YASMIN [Suspect]
     Indication: PRODUCT USED FOR UNKNOWN INDICATION
     Route: 048
     Dates: start: 20060601
  27. RESPAIRE [Concomitant]
  28. SINGULAIR [Concomitant]
  29. PANTOPRAZOLE [Concomitant]
  30. CLARINEX [Concomitant]
  31. ROPOXY-N/APAP [Concomitant]

REACTIONS (5)
  - ANXIETY [None]
  - CHOLECYSTITIS CHRONIC [None]
  - NAUSEA [None]
  - ABDOMINAL PAIN UPPER [None]
  - VOMITING [None]
